FAERS Safety Report 4421424-2 (Version None)
Quarter: 2004Q3

REPORT INFORMATION
  Report Type: 
  Country: None (occurrence: None)
  Receive Date: 20040709
  Receipt Date: 20040419
  Transmission Date: 20050211
  Serious: No
  Sender: FDA-Public Use
  Company Number: 2004S1000078

PATIENT
  Age: 56 Year
  Sex: Male
  Weight: 90 kg

DRUGS (6)
  1. CUBICIN [Suspect]
     Indication: DIABETIC FOOT
     Dosage: 360 MG, QOD; IV
     Route: 042
     Dates: start: 20040414
  2. CUBICIN [Suspect]
     Indication: STAPHYLOCOCCAL INFECTION
     Dosage: 360 MG, QOD; IV
     Route: 042
     Dates: start: 20040414
  3. VANCOMYCIN [Concomitant]
  4. INSULIN [Concomitant]
  5. FLORINEF [Concomitant]
  6. LASIX [Concomitant]

REACTIONS (1)
  - BACK PAIN [None]
